FAERS Safety Report 6457776-1 (Version None)
Quarter: 2009Q4

REPORT INFORMATION
  Report Type: 
  Country: None (occurrence: None)
  Receive Date: 20091120
  Receipt Date: 20091112
  Transmission Date: 20100525
  Serious: Yes (Hospitalization)
  Sender: FDA-Public Use
  Company Number: 2009CD0257

PATIENT
  Sex: Female

DRUGS (1)
  1. CEDAX [Suspect]
     Dosage: 400 MG TABLET, DAILY
     Dates: start: 20091029, end: 20091102

REACTIONS (7)
  - ASTHENIA [None]
  - DEHYDRATION [None]
  - ELECTROLYTE IMBALANCE [None]
  - HYPOKALAEMIA [None]
  - HYPONATRAEMIA [None]
  - PAIN [None]
  - PSEUDOMEMBRANOUS COLITIS [None]
